FAERS Safety Report 14324392 (Version 2)
Quarter: 2017Q4

REPORT INFORMATION
  Report Type: Spontaneous
  Country: IT (occurrence: IT)
  Receive Date: 20171226
  Receipt Date: 20171230
  Transmission Date: 20180321
  Serious: Yes (Other)
  Sender: FDA-Public Use
  Company Number: IT-AUROBINDO-AUR-APL-2017-47047

PATIENT
  Age: 43 Year
  Sex: Male

DRUGS (12)
  1. GABAPENTIN 100MG [Suspect]
     Active Substance: GABAPENTIN
     Dosage: UNK
     Route: 048
  2. LIBRIUM [Suspect]
     Active Substance: CHLORDIAZEPOXIDE HYDROCHLORIDE
     Indication: PRODUCT USED FOR UNKNOWN INDICATION
     Dosage: 20 MG, TOTAL
     Route: 048
     Dates: start: 20170920, end: 20170920
  3. LIBRIUM [Suspect]
     Active Substance: CHLORDIAZEPOXIDE HYDROCHLORIDE
     Dosage: UNK
     Route: 048
  4. DIAZEPAM ORAL DROPS SOLUTION [Suspect]
     Active Substance: DIAZEPAM
     Dosage: 30 MG, TOTAL
     Route: 048
     Dates: start: 20170920, end: 20170920
  5. RISPERDAL [Suspect]
     Active Substance: RISPERIDONE
     Dosage: UNK
     Route: 048
  6. ALCOVER [Suspect]
     Active Substance: SODIUM OXYBATE
     Dosage: UNK
     Route: 048
  7. ALCOHOL. [Suspect]
     Active Substance: ALCOHOL
     Indication: PRODUCT USED FOR UNKNOWN INDICATION
     Dosage: 1.5 L, UNK
     Route: 048
     Dates: start: 20170920, end: 20170920
  8. DIAZEPAM ORAL DROPS SOLUTION [Suspect]
     Active Substance: DIAZEPAM
     Indication: PRODUCT USED FOR UNKNOWN INDICATION
     Dosage: UNK
     Route: 048
  9. RISPERDAL [Suspect]
     Active Substance: RISPERIDONE
     Indication: PRODUCT USED FOR UNKNOWN INDICATION
     Dosage: 1 MG, TOTAL
     Route: 048
     Dates: start: 20170920, end: 20170920
  10. DIAZEPAM ALTER [Suspect]
     Active Substance: DIAZEPAM
     Indication: PRODUCT USED FOR UNKNOWN INDICATION
     Dosage: 30 MG, TOTAL
     Route: 048
     Dates: start: 20170920, end: 20170920
  11. GABAPENTIN 100MG [Suspect]
     Active Substance: GABAPENTIN
     Indication: PRODUCT USED FOR UNKNOWN INDICATION
     Dosage: 100 MG, TOTAL
     Route: 048
     Dates: start: 20170920, end: 20170920
  12. ALCOVER [Suspect]
     Active Substance: SODIUM OXYBATE
     Indication: PRODUCT USED FOR UNKNOWN INDICATION
     Dosage: 3 DF, UNK
     Route: 048
     Dates: start: 20170920, end: 20170920

REACTIONS (3)
  - Alcohol abuse [Unknown]
  - Asthenia [Unknown]
  - Drug abuse [Unknown]

NARRATIVE: CASE EVENT DATE: 20170920
